FAERS Safety Report 14782150 (Version 2)
Quarter: 2018Q2

REPORT INFORMATION
  Report Type: Report from Study
  Country: BR (occurrence: BR)
  Receive Date: 20180420
  Receipt Date: 20180503
  Transmission Date: 20180711
  Serious: Yes (Hospitalization)
  Sender: FDA-Public Use
  Company Number: BR-ACTELION-A-CH2018-170833

PATIENT
  Age: 11 Year
  Sex: Male

DRUGS (3)
  1. MIGLUSTAT CAPSULE 100 MG NPC ROW [Suspect]
     Active Substance: MIGLUSTAT
     Indication: NIEMANN-PICK DISEASE
     Dosage: UNK
     Route: 048
     Dates: start: 2011
  2. TRILEPTAL [Concomitant]
     Active Substance: OXCARBAZEPINE
  3. URBANIL [Concomitant]
     Active Substance: CLOBAZAM

REACTIONS (7)
  - Pneumonia aspiration [Unknown]
  - Vomiting [Unknown]
  - Choking [Unknown]
  - Niemann-Pick disease [Unknown]
  - Pyrexia [Unknown]
  - Disease progression [Unknown]
  - Increased bronchial secretion [Unknown]

NARRATIVE: CASE EVENT DATE: 2018
